FAERS Safety Report 8355593 (Version 3)
Quarter: 2013Q3

REPORT INFORMATION
  Report Type: Report from Study
  Country: FR (occurrence: FR)
  Receive Date: 20120126
  Receipt Date: 20130716
  Transmission Date: 20140515
  Serious: Yes (Other)
  Sender: FDA-Public Use
  Company Number: FR-CELGENEUS-056-21880-12010988

PATIENT
  Age: 54 Year
  Sex: Male
  Weight: 74 kg

DRUGS (13)
  1. REVLIMID [Suspect]
     Indication: ACUTE MYELOID LEUKAEMIA
     Dosage: 25 MILLIGRAM
     Route: 048
     Dates: start: 20111018, end: 20111031
  2. TIENAM [Suspect]
     Indication: FEBRILE NEUTROPENIA
     Dosage: 3 GRAM
     Route: 041
     Dates: start: 20111022, end: 20111030
  3. CANCIDAS [Suspect]
     Indication: FEBRILE NEUTROPENIA
     Dosage: 50 MILLIGRAM
     Route: 041
     Dates: start: 20111021, end: 20111030
  4. DAUNORUBICIN [Concomitant]
     Indication: ACUTE MYELOID LEUKAEMIA
     Route: 041
     Dates: start: 20111018, end: 20111025
  5. CYTARABINE [Concomitant]
     Indication: ACUTE MYELOID LEUKAEMIA
     Route: 041
     Dates: start: 20111018, end: 20111025
  6. TAZOCILLINE [Concomitant]
     Indication: PRODUCT USED FOR UNKNOWN INDICATION
     Route: 065
     Dates: start: 20111017, end: 20111022
  7. CLAFORAN [Concomitant]
     Indication: PRODUCT USED FOR UNKNOWN INDICATION
     Route: 065
     Dates: start: 20111030
  8. NOXAFIL [Concomitant]
     Indication: PRODUCT USED FOR UNKNOWN INDICATION
     Route: 065
     Dates: start: 20111030
  9. PRIMPERAN [Concomitant]
     Indication: NAUSEA
     Dosage: 1 TABLET MORNING, NOON AND EVENING
     Route: 048
     Dates: start: 20111109
  10. LEXOMIL [Concomitant]
     Indication: PRODUCT USED FOR UNKNOWN INDICATION
     Route: 048
     Dates: start: 20111109
  11. TOPALGIC [Concomitant]
     Indication: PAIN
     Dosage: 4 TABLET
     Route: 048
     Dates: start: 20111109
  12. BISEPTINE [Concomitant]
     Indication: PRODUCT USED FOR UNKNOWN INDICATION
     Dosage: 1 DOSAGE FORMS
     Route: 050
     Dates: start: 20111109
  13. PARACETAMOL [Concomitant]
     Indication: PRODUCT USED FOR UNKNOWN INDICATION
     Route: 065

REACTIONS (2)
  - Nephrogenic diabetes insipidus [Recovered/Resolved]
  - Bone marrow failure [Recovered/Resolved]
